FAERS Safety Report 11552957 (Version 1)
Quarter: 2015Q3

REPORT INFORMATION
  Report Type: Spontaneous
  Country: PL (occurrence: PL)
  Receive Date: 20150925
  Receipt Date: 20150925
  Transmission Date: 20151125
  Serious: Yes (Disabling)
  Sender: FDA-Public Use
  Company Number: PL-009507513-1509POL008891

PATIENT
  Age: 55 Year
  Sex: Male

DRUGS (3)
  1. DIPROPHOS [Suspect]
     Active Substance: BECLOMETHASONE DIPROPIONATE\BETAMETHASONE SODIUM PHOSPHATE
     Dosage: IN THE HIP-JOINT
     Route: 014
     Dates: start: 2015, end: 2015
  2. DIPROPHOS [Suspect]
     Active Substance: BECLOMETHASONE DIPROPIONATE\BETAMETHASONE SODIUM PHOSPHATE
     Indication: ARTHRITIS
     Dosage: IN THE RIGHT SHOULDER-JOINT
     Route: 014
     Dates: start: 20150828, end: 201508
  3. DIPROPHOS [Suspect]
     Active Substance: BECLOMETHASONE DIPROPIONATE\BETAMETHASONE SODIUM PHOSPHATE
     Dosage: IN THE LEFT SHOULDER-JOINT
     Route: 014
     Dates: start: 2015, end: 2015

REACTIONS (3)
  - Disturbance in attention [Not Recovered/Not Resolved]
  - Headache [Unknown]
  - Visual impairment [Not Recovered/Not Resolved]

NARRATIVE: CASE EVENT DATE: 20150828
